FAERS Safety Report 18096374 (Version 1)
Quarter: 2020Q3

REPORT INFORMATION
  Report Type: Spontaneous
  Country: SE (occurrence: SE)
  Receive Date: 20200731
  Receipt Date: 20200731
  Transmission Date: 20201103
  Serious: Yes (Other)
  Sender: FDA-Public Use
  Company Number: SE-ASTRAZENECA-2020SE94398

PATIENT
  Age: 76 Year
  Sex: Female
  Weight: 75 kg

DRUGS (3)
  1. BRILIQUE [Suspect]
     Active Substance: TICAGRELOR
     Indication: STENT PLACEMENT
     Route: 048
     Dates: start: 20200213
  2. BISOPROLOL ACCORD [Concomitant]
     Active Substance: BISOPROLOL
     Route: 065
     Dates: start: 20200213
  3. TROMBYL [Concomitant]
     Active Substance: ASPIRIN
     Dates: start: 1989

REACTIONS (9)
  - Heart rate increased [Recovering/Resolving]
  - Dyspnoea [Recovering/Resolving]
  - Ventricular extrasystoles [Recovering/Resolving]
  - Weight increased [Recovering/Resolving]
  - Contusion [Recovering/Resolving]
  - Fatigue [Recovering/Resolving]
  - Oedema [Recovering/Resolving]
  - Dizziness [Recovering/Resolving]
  - Thrombophlebitis superficial [Recovering/Resolving]

NARRATIVE: CASE EVENT DATE: 202002
